FAERS Safety Report 17620355 (Version 1)
Quarter: 2020Q2

REPORT INFORMATION
  Report Type: Spontaneous
  Country: RO (occurrence: RO)
  Receive Date: 20200403
  Receipt Date: 20200403
  Transmission Date: 20200713
  Serious: Yes (Other)
  Sender: FDA-Public Use
  Company Number: RO-ACCORD-177954

PATIENT
  Age: 61 Year
  Sex: Male
  Weight: 74 kg

DRUGS (5)
  1. METHOTREXATE. [Suspect]
     Active Substance: METHOTREXATE
     Indication: SPONDYLITIS
     Dosage: 2.5 MG
     Dates: start: 20130319, end: 20200104
  2. HUMIRA [Suspect]
     Active Substance: ADALIMUMAB
     Indication: SPONDYLITIS
     Dosage: 40 MG EVERY 2 WEEKS
     Dates: start: 20131130, end: 20200104
  3. FLAMEXIN [Concomitant]
     Active Substance: PIROXICAM BETADEX
     Indication: SPONDYLITIS
     Dosage: 1 TABLET AT 2 DAYS, AT NECESSARY, MAXIMUM 12 TABLETS/ MONTH
     Dates: start: 20130320
  4. SULFASALAZINE. [Concomitant]
     Active Substance: SULFASALAZINE
     Indication: SPONDYLITIS
     Route: 048
     Dates: start: 20141016
  5. OMEZ 20 [Concomitant]
     Active Substance: OMEPRAZOLE
     Dosage: 1 TABLET
     Dates: start: 20130225

REACTIONS (1)
  - Respiratory tract infection [Recovered/Resolved]

NARRATIVE: CASE EVENT DATE: 20200104
